FAERS Safety Report 8826404 (Version 2)
Quarter: 2013Q3

REPORT INFORMATION
  Report Type: Spontaneous
  Country: US (occurrence: US)
  Receive Date: 20121005
  Receipt Date: 20130904
  Transmission Date: 20140515
  Serious: No
  Sender: FDA-Public Use
  Company Number: US-ASTRAZENECA-2012SE23340

PATIENT
  Age: 63 Year
  Sex: Female
  Weight: 61.2 kg

DRUGS (7)
  1. NEXIUM [Suspect]
     Indication: GASTROOESOPHAGEAL REFLUX DISEASE
     Route: 048
     Dates: start: 2011, end: 20130807
  2. TOPROL XL [Suspect]
     Indication: BLOOD PRESSURE ABNORMAL
     Route: 048
     Dates: start: 2010
  3. CRESTOR [Suspect]
     Indication: BLOOD CHOLESTEROL ABNORMAL
     Route: 048
     Dates: start: 2010
  4. LISINOPRIL [Suspect]
     Indication: BLOOD PRESSURE ABNORMAL
     Route: 048
  5. UNSPECIFIED CAINES [Suspect]
     Route: 065
  6. IBUPROPHEN [Concomitant]
     Indication: HEADACHE
  7. BABY ASPIRIN [Concomitant]
     Indication: ANTIPLATELET THERAPY

REACTIONS (8)
  - Blood cholesterol increased [Unknown]
  - Blood cholesterol abnormal [Unknown]
  - Muscle spasms [Unknown]
  - Chest pain [Unknown]
  - Headache [Unknown]
  - Drug hypersensitivity [Unknown]
  - Off label use [Unknown]
  - Drug dose omission [Unknown]
